FAERS Safety Report 7630545-2 (Version None)
Quarter: 2011Q3

REPORT INFORMATION
  Report Type: 
  Country: None (occurrence: None)
  Receive Date: 20110722
  Receipt Date: 20110712
  Transmission Date: 20111222
  Serious: Yes (Other)
  Sender: FDA-Public Use
  Company Number: FR-GENZYME-CLOF-1001693

PATIENT
  Age: 20 Year
  Sex: Female

DRUGS (10)
  1. BUSULFAN [Suspect]
     Indication: HAEMATOLOGICAL MALIGNANCY
  2. BUSULFAN [Suspect]
     Indication: BONE MARROW CONDITIONING REGIMEN
     Dosage: 3.2 MG/KG, QD DAYS -4 TO -3
     Route: 042
  3. RULID [Concomitant]
     Indication: PRODUCT USED FOR UNKNOWN INDICATION
     Dosage: UNK
     Route: 065
  4. THYMOGLOBULIN [Suspect]
     Indication: HAEMATOLOGICAL MALIGNANCY
  5. NEORAL [Concomitant]
     Indication: PRODUCT USED FOR UNKNOWN INDICATION
     Dosage: UNK
     Route: 065
  6. EVOLTRA [Suspect]
     Indication: HAEMATOLOGICAL MALIGNANCY
     Dosage: 30 MG/M2, QD FROM DAY -8 TO -5
     Route: 065
  7. EVOLTRA [Suspect]
     Indication: BONE MARROW CONDITIONING REGIMEN
  8. THYMOGLOBULIN [Suspect]
     Indication: BONE MARROW CONDITIONING REGIMEN
     Dosage: 2.5 MG/KG, QD FROM DAY -2 TO -1
     Route: 065
  9. NEORAL [Concomitant]
     Indication: IMMUNOSUPPRESSANT DRUG THERAPY
  10. BACTRIM [Concomitant]
     Indication: PRODUCT USED FOR UNKNOWN INDICATION
     Dosage: UNK
     Route: 065

REACTIONS (1)
  - CLOSTRIDIUM DIFFICILE COLITIS [None]
